FAERS Safety Report 6758989 (Version 2)
Quarter: 2018Q2

REPORT INFORMATION
  Report Type: Spontaneous
  Country: FR (occurrence: FR)
  Receive Date: 20080915
  Receipt Date: 20180626
  Transmission Date: 20180711
  Serious: Yes (Death, Other)
  Sender: FDA-Public Use
  Company Number: FR-BRISTOL-MYERS SQUIBB COMPANY-14330443

PATIENT
  Age: 56 Year
  Sex: Male

DRUGS (12)
  1. HYDROXYZINE [Suspect]
     Active Substance: HYDROXYZINE HYDROCHLORIDE
     Indication: PRODUCT USED FOR UNKNOWN INDICATION
     Dosage: FORMULATION:TAB.
     Route: 065
     Dates: start: 20080621
  2. LOXAPINE. [Suspect]
     Active Substance: LOXAPINE
     Indication: PRODUCT USED FOR UNKNOWN INDICATION
     Dosage: FORMULATION:TAB.
     Route: 065
     Dates: start: 20080703
  3. ABILIFY [Suspect]
     Active Substance: ARIPIPRAZOLE
     Indication: PRODUCT USED FOR UNKNOWN INDICATION
     Dosage: 10 MG, QD
     Route: 065
     Dates: start: 20080715
  4. ALPRAZOLAM. [Suspect]
     Active Substance: ALPRAZOLAM
     Indication: PRODUCT USED FOR UNKNOWN INDICATION
     Dosage: FORMULATION:TAB.
     Route: 065
     Dates: start: 20080718
  5. AMOXICILLIN+CLAVULANIC ACID [Suspect]
     Active Substance: AMOXICILLIN\CLAVULANIC ACID
     Indication: LUNG DISORDER
     Dosage: 1 G, TID
     Route: 065
     Dates: start: 20080622, end: 20080630
  6. PHLOROGLUCINOL [Concomitant]
     Active Substance: PHLOROGLUCINOL
     Indication: PRODUCT USED FOR UNKNOWN INDICATION
     Route: 065
  7. AMOXICILLIN TRIHYDRATE [Suspect]
     Active Substance: AMOXICILLIN
     Indication: LUNG DISORDER
     Dosage: 1 G, TID
     Route: 065
     Dates: start: 20080622, end: 20080630
  8. CYAMEMAZINE [Suspect]
     Active Substance: CYAMEMAZINE
     Indication: PRODUCT USED FOR UNKNOWN INDICATION
     Dosage: FORMULATION: TAB.
     Route: 065
     Dates: start: 20080718
  9. KETOPROFEN. [Concomitant]
     Active Substance: KETOPROFEN
     Indication: PRODUCT USED FOR UNKNOWN INDICATION
     Dosage: FORMULATION:GEL
     Route: 065
  10. AMISULPRIDE [Suspect]
     Active Substance: AMISULPRIDE
     Indication: PRODUCT USED FOR UNKNOWN INDICATION
     Dosage: HALF TABLET PER DAY.
     Route: 065
  11. SALBUTAMOL [Concomitant]
     Active Substance: ALBUTEROL
     Indication: PRODUCT USED FOR UNKNOWN INDICATION
     Route: 065
  12. TROPATEPINE [Suspect]
     Active Substance: TROPATEPINE
     Indication: PRODUCT USED FOR UNKNOWN INDICATION
     Dosage: FORMULATION:TAB.
     Route: 065

REACTIONS (6)
  - Leukocytosis [Fatal]
  - Diarrhoea infectious [Fatal]
  - Acute kidney injury [Fatal]
  - Enterocolitis [Fatal]
  - Hyperleukocytosis [Fatal]
  - Sepsis [Fatal]

NARRATIVE: CASE EVENT DATE: 20080718
